FAERS Safety Report 9701939 (Version 20)
Quarter: 2021Q4

REPORT INFORMATION
  Report Type: Spontaneous
  Country: US (occurrence: US)
  Receive Date: 20131121
  Receipt Date: 20211014
  Transmission Date: 20220303
  Serious: Yes (Hospitalization, Other)
  Sender: FDA-Public Use
  Company Number: US-PFIZER INC-2013330803

PATIENT
  Age: 71 Year
  Sex: Female
  Weight: 57 kg

DRUGS (8)
  1. LYRICA [Suspect]
     Active Substance: PREGABALIN
     Indication: Spinal disorder
     Dosage: 150 MG (EVERY THREE TO FOUR HOURS)
     Route: 048
     Dates: start: 2010
  2. LYRICA [Suspect]
     Active Substance: PREGABALIN
     Indication: Procedural pain
     Dosage: 150 MG, 2X/DAY
     Route: 048
  3. LYRICA [Suspect]
     Active Substance: PREGABALIN
     Indication: Meniscus injury
     Dosage: 50 MG (SAMPLES)
  4. LYRICA [Suspect]
     Active Substance: PREGABALIN
     Indication: Pain
     Dosage: 100 MG
  5. LYRICA [Suspect]
     Active Substance: PREGABALIN
     Dosage: 150 MG, 3X/DAY
  6. LYRICA [Suspect]
     Active Substance: PREGABALIN
     Dosage: 150 MG, 4X/DAY
     Route: 048
  7. CITALOPRAM [Concomitant]
     Active Substance: CITALOPRAM HYDROBROMIDE
     Indication: Serum serotonin decreased
     Dosage: UNK
  8. PRAVASTATIN [Concomitant]
     Active Substance: PRAVASTATIN
     Indication: Blood cholesterol increased
     Dosage: UNK

REACTIONS (13)
  - Foot fracture [Unknown]
  - Paraesthesia [Unknown]
  - Road traffic accident [Unknown]
  - Injury [Unknown]
  - Back injury [Unknown]
  - Joint injury [Unknown]
  - Therapeutic product effect incomplete [Unknown]
  - Hypoacusis [Unknown]
  - Nightmare [Unknown]
  - Gait disturbance [Unknown]
  - Nerve injury [Unknown]
  - Muscle injury [Unknown]
  - Arthritis [Unknown]

NARRATIVE: CASE EVENT DATE: 20100101
